FAERS Safety Report 5509412-6 (Version None)
Quarter: 2007Q4

REPORT INFORMATION
  Report Type: 
  Country: None (occurrence: None)
  Receive Date: 20071107
  Receipt Date: 20071026
  Transmission Date: 20080405
  Serious: Yes (Hospitalization)
  Sender: FDA-Public Use
  Company Number: DE-PFIZER INC-2006118394

PATIENT
  Sex: Male
  Weight: 79 kg

DRUGS (14)
  1. MARAVIROC [Suspect]
     Indication: HIV TEST POSITIVE
     Route: 048
     Dates: start: 20050829, end: 20060104
  2. MARAVIROC [Suspect]
  3. NOVALGIN [Concomitant]
     Route: 048
  4. IBUPROFEN [Concomitant]
     Route: 048
     Dates: start: 20060426
  5. FUCICORT [Concomitant]
     Route: 061
     Dates: start: 20060606
  6. LOPERAMIDE HCL [Concomitant]
     Route: 048
     Dates: start: 20060606
  7. MUCOFALK [Concomitant]
     Route: 048
     Dates: start: 20060606
  8. AVELOX [Concomitant]
     Route: 048
     Dates: start: 20060905, end: 20060912
  9. ACETYLCYSTEINE [Concomitant]
     Route: 048
     Dates: start: 20060905, end: 20060914
  10. AERIUS [Concomitant]
     Route: 048
     Dates: start: 20060714
  11. VFEND [Concomitant]
     Route: 048
  12. TRUVADA [Concomitant]
     Route: 048
  13. FOSAMPRENAVIR [Concomitant]
     Route: 048
     Dates: start: 20050829
  14. NORVIR [Concomitant]
     Route: 048
     Dates: start: 20050829

REACTIONS (1)
  - THROMBOSIS [None]
